FAERS Safety Report 19927286 (Version 1)
Quarter: 2021Q4

REPORT INFORMATION
  Report Type: Spontaneous
  Country: US (occurrence: US)
  Receive Date: 20211007
  Receipt Date: 20211007
  Transmission Date: 20220303
  Serious: Yes (Hospitalization)
  Sender: FDA-Public Use
  Company Number: US-INDIVIOR EUROPE LIMITED-INDV-129178-2021

PATIENT
  Age: 42 Year
  Sex: Female

DRUGS (3)
  1. SUBOXONE [Suspect]
     Active Substance: BUPRENORPHINE HYDROCHLORIDE\NALOXONE HYDROCHLORIDE
     Indication: Drug dependence
     Dosage: ONE 8MG FILM
     Route: 060
  2. SUBOXONE [Suspect]
     Active Substance: BUPRENORPHINE HYDROCHLORIDE\NALOXONE HYDROCHLORIDE
     Dosage: ONE 8MG FILM
     Route: 002
  3. SUBOXONE [Suspect]
     Active Substance: BUPRENORPHINE HYDROCHLORIDE\NALOXONE HYDROCHLORIDE
     Dosage: ONE 8MG FILM (SEPARATE TIME OF THE DAY)
     Route: 065

REACTIONS (13)
  - Drug detoxification [Unknown]
  - Tooth fracture [Unknown]
  - Hyperaesthesia teeth [Recovered/Resolved]
  - Tooth loss [Recovered/Resolved]
  - Diastema [Recovered/Resolved]
  - Periodontal disease [Not Recovered/Not Resolved]
  - Glucose tolerance impaired [Unknown]
  - Dental caries [Not Recovered/Not Resolved]
  - Sexual dysfunction [Unknown]
  - Stomatitis [Not Recovered/Not Resolved]
  - Somnolence [Unknown]
  - Drug intolerance [Unknown]
  - Intentional product misuse [Recovered/Resolved]

NARRATIVE: CASE EVENT DATE: 20200601
